FAERS Safety Report 5215085-2 (Version None)
Quarter: 2007Q1

REPORT INFORMATION
  Report Type: 
  Country: None (occurrence: None)
  Receive Date: 20061107
  Receipt Date: 20060821
  Transmission Date: 20070707
  Serious: No
  Sender: FDA-Public Use
  Company Number: 200613131BWH

PATIENT
  Age: 69 Year
  Sex: Male

DRUGS (9)
  1. LEVITRA [Suspect]
     Indication: DRUG USE FOR UNKNOWN INDICATION
     Dosage: SEE IMAGE
     Route: 048
  2. ATENOLOL [Concomitant]
  3. CARDURA [Concomitant]
  4. COZAAR [Concomitant]
  5. ASPIRIN [Concomitant]
  6. MOBIC [Concomitant]
  7. ZOCOR [Concomitant]
  8. NORTRIPTYLINE HCL [Concomitant]
  9. FLONASE [Concomitant]

REACTIONS (2)
  - DYSURIA [None]
  - THROAT TIGHTNESS [None]
